FAERS Safety Report 15846926 (Version 1)
Quarter: 2019Q1

REPORT INFORMATION
  Report Type: Spontaneous
  Country: FR (occurrence: FR)
  Receive Date: 20190121
  Receipt Date: 20190121
  Transmission Date: 20190417
  Serious: Yes (Hospitalization, Other)
  Sender: FDA-Public Use
  Company Number: FR-BRISTOL-MYERS SQUIBB COMPANY-BMS-2019-003720

PATIENT
  Age: 78 Year
  Sex: Male
  Weight: 76 kg

DRUGS (2)
  1. KARDEGIC [Suspect]
     Active Substance: ASPIRIN DL-LYSINE
     Indication: PROPHYLAXIS
     Dosage: 75 MG, DRUG INTERVAL 1 DAY
     Route: 048
  2. COUMADINE [Suspect]
     Active Substance: WARFARIN SODIUM
     Indication: PROPHYLAXIS
     Dosage: 4 MG, DRUG INTERVAL 1 DAY
     Route: 048
     Dates: start: 20180821, end: 20181211

REACTIONS (3)
  - Anaemia [Recovered/Resolved]
  - Melaena [Recovered/Resolved]
  - Chest pain [Recovered/Resolved]

NARRATIVE: CASE EVENT DATE: 20181211
